FAERS Safety Report 7399896-3 (Version None)
Quarter: 2011Q2

REPORT INFORMATION
  Report Type: 
  Country: None (occurrence: None)
  Receive Date: 20110407
  Receipt Date: 20110329
  Transmission Date: 20111010
  Serious: Yes (Hospitalization, Other)
  Sender: FDA-Public Use
  Company Number: US-SANOFI-AVENTIS-2009SA002739

PATIENT
  Age: 70 Year
  Sex: Male
  Weight: 75 kg

DRUGS (15)
  1. UROXATRAL [Suspect]
     Indication: PROSTATIC DISORDER
     Route: 048
     Dates: start: 20091101
  2. UROXATRAL [Suspect]
     Route: 048
     Dates: start: 20091101
  3. ARICEPT [Suspect]
     Route: 048
     Dates: start: 20100414, end: 20100511
  4. AVODART [Concomitant]
     Indication: PROSTATIC DISORDER
     Route: 048
     Dates: start: 20070101
  5. METOPROLOL [Concomitant]
     Indication: BLOOD PRESSURE ABNORMAL
     Route: 048
     Dates: start: 20050101
  6. ALPRAZOLAM [Concomitant]
     Indication: NERVOUS SYSTEM DISORDER
     Route: 048
     Dates: start: 19880101
  7. ZETIA [Concomitant]
     Route: 048
     Dates: start: 20060101
  8. FUROSEMIDE [Concomitant]
     Route: 065
  9. DILTIAZEM HCL [Concomitant]
     Indication: BLOOD PRESSURE ABNORMAL
     Route: 048
     Dates: start: 20050101
  10. QUINAPRIL [Concomitant]
     Indication: BLOOD PRESSURE ABNORMAL
     Route: 048
     Dates: start: 20030101
  11. ARICEPT [Suspect]
     Route: 048
     Dates: start: 20100512, end: 20100601
  12. AMBIEN [Concomitant]
     Route: 065
  13. ARICEPT [Suspect]
     Route: 048
     Dates: start: 20100414, end: 20100511
  14. NAMENDA [Suspect]
     Indication: DEMENTIA
     Route: 048
     Dates: start: 20100921
  15. POTASSIUM CHLORIDE [Concomitant]
     Route: 048
     Dates: start: 20050101

REACTIONS (23)
  - ERYTHEMA [None]
  - STRESS [None]
  - DEMENTIA [None]
  - OEDEMA PERIPHERAL [None]
  - DIARRHOEA [None]
  - INSOMNIA [None]
  - ASTHENIA [None]
  - EYE IRRITATION [None]
  - NAUSEA [None]
  - BACK PAIN [None]
  - DYSURIA [None]
  - HEADACHE [None]
  - BLADDER DISCOMFORT [None]
  - SOMNOLENCE [None]
  - DIZZINESS [None]
  - MALAISE [None]
  - VITAMIN D DECREASED [None]
  - COLD SWEAT [None]
  - PNEUMONIA BACTERIAL [None]
  - URINE FLOW DECREASED [None]
  - ABDOMINAL DISCOMFORT [None]
  - GAIT DISTURBANCE [None]
  - NIGHTMARE [None]
